FAERS Safety Report 10033221 (Version 1)
Quarter: 2014Q1

REPORT INFORMATION
  Report Type: Spontaneous
  Country: SE (occurrence: SE)
  Receive Date: 20140324
  Receipt Date: 20140324
  Transmission Date: 20141002
  Serious: Yes (Death, Other)
  Sender: FDA-Public Use
  Company Number: PHHY2014SE032041

PATIENT
  Age: 5 Year
  Sex: Female

DRUGS (3)
  1. CARBOPLATIN [Suspect]
     Indication: RHABDOID TUMOUR
     Dosage: 1.2G/M2
  2. IFOSFAMIDE [Suspect]
     Indication: RHABDOID TUMOUR
     Dosage: 33 G/M2
  3. CYCLOPHOSPHAMIDE [Suspect]
     Indication: RHABDOID TUMOUR
     Dosage: 11.9G/M2

REACTIONS (2)
  - Rhabdoid tumour [Fatal]
  - Ovarian disorder [Unknown]
